FAERS Safety Report 11558340 (Version 1)
Quarter: 2015Q3

REPORT INFORMATION
  Report Type: Spontaneous
  Country: US (occurrence: None)
  Receive Date: 20150925
  Receipt Date: 20150925
  Transmission Date: 20151125
  Serious: No
  Sender: FDA-Public Use
  Company Number: None

PATIENT
  Age: 51 Year
  Sex: Male
  Weight: 97.52 kg

DRUGS (1)
  1. IBUPROFEN 200 MG HEALTHY ACCENTS [Suspect]
     Active Substance: IBUPROFEN
     Dosage: TAKEN BY MOUTH
     Dates: start: 20150912, end: 20150923

REACTIONS (3)
  - Product commingling [None]
  - Product packaging issue [None]
  - Wrong drug administered [None]

NARRATIVE: CASE EVENT DATE: 20150923
